FAERS Safety Report 4949165-3 (Version None)
Quarter: 2006Q1

REPORT INFORMATION
  Report Type: 
  Country: None (occurrence: None)
  Receive Date: 20060321
  Receipt Date: 20050526
  Transmission Date: 20060701
  Serious: Yes (Hospitalization, Other)
  Sender: FDA-Public Use
  Company Number: US-MERCK-0505USA03242

PATIENT
  Age: 81 Year
  Sex: Male
  Weight: 76 kg

DRUGS (13)
  1. VIOXX [Suspect]
     Indication: ARTHRITIS
     Route: 048
     Dates: start: 20000117
  2. VIOXX [Suspect]
     Route: 048
     Dates: end: 20040901
  3. VIOXX [Suspect]
     Indication: BACK PAIN
     Route: 048
     Dates: start: 20000117
  4. VIOXX [Suspect]
     Route: 048
     Dates: end: 20040901
  5. TYLENOL (CAPLET) [Concomitant]
     Route: 065
  6. ALEVE [Concomitant]
     Route: 065
  7. RITUXAN [Concomitant]
     Indication: LYMPHOMA
     Route: 065
     Dates: start: 20040701
  8. ANTINEOPLASTIC (UNSPECIFIED) [Concomitant]
     Route: 065
     Dates: start: 20020901
  9. FOLIC ACID [Concomitant]
     Route: 048
  10. PREDNISONE [Concomitant]
     Route: 048
  11. PYRIDOXINE [Concomitant]
     Route: 065
  12. CYANOCOBALAMIN [Concomitant]
     Route: 065
  13. [THERAPY UNSPECIFIED] [Concomitant]
     Route: 065

REACTIONS (18)
  - AMNESIA [None]
  - ANGIOPATHY [None]
  - AUTONOMIC NEUROPATHY [None]
  - CARDIAC ARREST [None]
  - CARDIOVASCULAR DISORDER [None]
  - CEREBRAL INFARCTION [None]
  - CEREBROVASCULAR ACCIDENT [None]
  - CONVULSION [None]
  - ECCHYMOSIS [None]
  - ERYTHEMA [None]
  - HYPONATRAEMIA [None]
  - INJURY [None]
  - LOSS OF CONSCIOUSNESS [None]
  - LYMPHOMA [None]
  - NEUROPATHY [None]
  - OEDEMA PERIPHERAL [None]
  - PAIN [None]
  - POLYMYALGIA RHEUMATICA [None]
